FAERS Safety Report 24617386 (Version 4)
Quarter: 2024Q4

REPORT INFORMATION
  Report Type: Report from Study
  Country: US (occurrence: US)
  Receive Date: 20241114
  Receipt Date: 20241212
  Transmission Date: 20250114
  Serious: Yes (Hospitalization, Other)
  Sender: GILEAD
  Company Number: US-GILEAD-2024-0693948

PATIENT
  Age: 57 Year
  Sex: Female

DRUGS (6)
  1. AMBRISENTAN [Suspect]
     Active Substance: AMBRISENTAN
     Indication: Idiopathic pulmonary fibrosis
     Dosage: 10 MG, QD
     Route: 065
     Dates: start: 20220524
  2. AMBRISENTAN [Suspect]
     Active Substance: AMBRISENTAN
     Indication: Pulmonary hypertension
  3. TYVASO [Concomitant]
     Active Substance: TREPROSTINIL
  4. OFEV [Concomitant]
     Active Substance: NINTEDANIB
  5. TADALAFIL [Concomitant]
     Active Substance: TADALAFIL
  6. WINREVAIR [Concomitant]
     Active Substance: SOTATERCEPT-CSRK

REACTIONS (7)
  - Rhinovirus infection [Unknown]
  - Pulmonary oedema [Unknown]
  - Heart rate increased [Unknown]
  - Palpitations [Unknown]
  - Dyspnoea [Unknown]
  - Oxygen saturation decreased [Unknown]
  - Epistaxis [Unknown]
